FAERS Safety Report 23322140 (Version 1)
Quarter: 2023Q4

REPORT INFORMATION
  Report Type: Spontaneous
  Country: US (occurrence: US)
  Receive Date: 20231220
  Receipt Date: 20231220
  Transmission Date: 20240110
  Serious: No
  Sender: FDA-Public Use
  Company Number: US-BRISTOL-MYERS SQUIBB COMPANY-2023-183927

PATIENT
  Age: 74 Year
  Sex: Female
  Weight: 70.31 kg

DRUGS (1)
  1. REVLIMID [Suspect]
     Active Substance: LENALIDOMIDE
     Indication: Plasma cell myeloma
     Dosage: ONGOING
     Route: 048
     Dates: start: 20231001

REACTIONS (7)
  - Fatigue [Unknown]
  - Pain [Unknown]
  - Decreased appetite [Unknown]
  - Peripheral swelling [Unknown]
  - Blood potassium decreased [Unknown]
  - Dysgeusia [Unknown]
  - Off label use [Unknown]
